FAERS Safety Report 5838801-5 (Version None)
Quarter: 2008Q3

REPORT INFORMATION
  Report Type: 
  Country: None (occurrence: None)
  Receive Date: 20080808
  Receipt Date: 20080731
  Transmission Date: 20090109
  Serious: Yes (Hospitalization, Other)
  Sender: FDA-Public Use
  Company Number: IE-AMGEN-UK297102

PATIENT
  Sex: Female

DRUGS (2)
  1. VECTIBIX [Suspect]
     Indication: COLORECTAL CANCER
     Dates: start: 20080617
  2. IRINOTECAN HCL [Suspect]

REACTIONS (6)
  - DIPLOPIA [None]
  - HYPOGLYCAEMIA [None]
  - RASH [None]
  - RASH GENERALISED [None]
  - VISION BLURRED [None]
  - VISUAL ACUITY REDUCED [None]
